FAERS Safety Report 10733923 (Version 1)
Quarter: 2015Q1

REPORT INFORMATION
  Report Type: Spontaneous
  Country: FR (occurrence: FR)
  Receive Date: 20150123
  Receipt Date: 20150123
  Transmission Date: 20150721
  Serious: Yes (Life-Threatening, Hospitalization, Other)
  Sender: FDA-Public Use
  Company Number: FR-ASTRAZENECA-2015SE05204

PATIENT
  Age: 6093 Day
  Sex: Female
  Weight: 47 kg

DRUGS (2)
  1. XYLOCAINE WITH EPINEPHRINE [Suspect]
     Active Substance: EPINEPHRINE BITARTRATE\LIDOCAINE HYDROCHLORIDE
     Route: 058
     Dates: start: 20141017, end: 20141017
  2. LIDOCAINE AGUETTANT [Suspect]
     Active Substance: LIDOCAINE
     Indication: INDUCTION OF ANAESTHESIA
     Route: 042
     Dates: start: 20141017, end: 20141017

REACTIONS (3)
  - Cardiogenic shock [Recovered/Resolved]
  - Left ventricular failure [Unknown]
  - Acute pulmonary oedema [Unknown]

NARRATIVE: CASE EVENT DATE: 20141017
